FAERS Safety Report 6317234-1 (Version None)
Quarter: 2009Q3

REPORT INFORMATION
  Report Type: 
  Country: None (occurrence: None)
  Receive Date: 20090819
  Receipt Date: 20090805
  Transmission Date: 20100115
  Serious: Yes (Other)
  Sender: FDA-Public Use
  Company Number: 8049970

PATIENT
  Age: 50 Year
  Sex: Female
  Weight: 61.3 kg

DRUGS (9)
  1. KEPPRA [Suspect]
     Indication: CONVULSION
     Dosage: 2500 MG/D PO
     Route: 048
     Dates: start: 20050201
  2. TEGRETOL [Concomitant]
  3. LEVOTHYROXINE SODIUM [Concomitant]
  4. CELEXA [Concomitant]
  5. CLARITIN [Concomitant]
  6. ASPIRIN [Concomitant]
  7. LIPITOR [Concomitant]
  8. ZAROXOLYN [Concomitant]
  9. POTASSIUM CHLORIDE [Concomitant]

REACTIONS (2)
  - CONVULSION [None]
  - ROAD TRAFFIC ACCIDENT [None]
